FAERS Safety Report 4408811-3 (Version None)
Quarter: 2004Q3

REPORT INFORMATION
  Report Type: 
  Country: None (occurrence: None)
  Receive Date: 20040722
  Receipt Date: 20040708
  Transmission Date: 20050211
  Serious: Yes (Hospitalization, Other)
  Sender: FDA-Public Use
  Company Number: 03-0068 PO FOLLOW-UP 1

PATIENT
  Age: 30 Year
  Sex: Male

DRUGS (4)
  1. PONSTEL [Suspect]
     Indication: PAIN
     Dosage: PO
     Route: 048
  2. PONSTEL [Suspect]
     Indication: PYREXIA
     Dosage: PO
     Route: 048
  3. CEFZON (CEFIDINIR) [Suspect]
     Indication: PAIN
     Dosage: PO
     Route: 048
  4. CEFZON (CEFIDINIR) [Suspect]
     Indication: PYREXIA
     Dosage: PO
     Route: 048

REACTIONS (18)
  - ACTIVATED PARTIAL THROMBOPLASTIN TIME PROLONGED [None]
  - ALANINE AMINOTRANSFERASE INCREASED [None]
  - ASPARTATE AMINOTRANSFERASE INCREASED [None]
  - BILIRUBIN CONJUGATED INCREASED [None]
  - BLOOD AMYLASE INCREASED [None]
  - BLOOD BILIRUBIN INCREASED [None]
  - BLOOD CREATINE PHOSPHOKINASE INCREASED [None]
  - BLOOD FIBRINOGEN INCREASED [None]
  - CONJUNCTIVAL HYPERAEMIA [None]
  - DRUG INTERACTION [None]
  - EYE MOVEMENT DISORDER [None]
  - LIVER DISORDER [None]
  - MULTI-ORGAN FAILURE [None]
  - MYCOPLASMA INFECTION [None]
  - PANCREATIC DISORDER [None]
  - PLATELET COUNT DECREASED [None]
  - RENAL DISORDER [None]
  - TOXIC EPIDERMAL NECROLYSIS [None]
